FAERS Safety Report 4930402-6 (Version None)
Quarter: 2006Q1

REPORT INFORMATION
  Report Type: 
  Country: None (occurrence: None)
  Receive Date: 20060118
  Receipt Date: 20050711
  Transmission Date: 20060701
  Serious: No
  Sender: FDA-Public Use
  Company Number: 2005001311

PATIENT
  Age: 70 Year
  Sex: Male
  Weight: 67.1324 kg

DRUGS (2)
  1. TARCEVA [Suspect]
     Indication: LUNG NEOPLASM MALIGNANT
     Dosage: 150 MG (QD), ORAL
     Route: 048
  2. TAXOTERE [Concomitant]

REACTIONS (3)
  - DIARRHOEA [None]
  - DYSGEUSIA [None]
  - WEIGHT DECREASED [None]
